FAERS Safety Report 9668041 (Version 1)
Quarter: 2013Q4

REPORT INFORMATION
  Report Type: Spontaneous
  Country: US (occurrence: US)
  Receive Date: 20131104
  Receipt Date: 20131104
  Transmission Date: 20140711
  Serious: No
  Sender: FDA-Public Use
  Company Number: US-PFIZER INC-2013310622

PATIENT
  Age: 20 Year
  Sex: Male

DRUGS (2)
  1. QUILLIVANT XR [Suspect]
     Indication: ATTENTION DEFICIT/HYPERACTIVITY DISORDER
     Dosage: UNK
  2. LYSERGIC ACID DIETHYLAMIDE [Suspect]
     Dosage: UNK

REACTIONS (2)
  - Delusional disorder, unspecified type [Unknown]
  - Tobacco user [Unknown]
